FAERS Safety Report 19457109 (Version 2)
Quarter: 2021Q3

REPORT INFORMATION
  Report Type: Report from Study
  Country: FR (occurrence: FR)
  Receive Date: 20210624
  Receipt Date: 20210705
  Transmission Date: 20211014
  Serious: Yes (Other)
  Sender: FDA-Public Use
  Company Number: FR-PFIZER INC-2021763053

PATIENT
  Age: 71 Year
  Sex: Female

DRUGS (4)
  1. TRAMETINIB [Suspect]
     Active Substance: TRAMETINIB
     Indication: METASTATIC MALIGNANT MELANOMA
     Dosage: UNKNOWN DOSE IN ASSOCIATION WITH DABRAFENIB (DAB)
     Route: 065
  2. ENCORAFENIB [Suspect]
     Active Substance: ENCORAFENIB
     Indication: METASTATIC MALIGNANT MELANOMA
     Dosage: REDUCED DOSE OF ASSOCIATION WITH BINIMETINIB (BIN)
     Route: 065
  3. BINIMETINIB [Suspect]
     Active Substance: BINIMETINIB
     Indication: METASTATIC MALIGNANT MELANOMA
     Dosage: REDUCED DOSE IN ASSOCIATION WITH ENCORAFENIB (ENC)
     Route: 065
  4. DABRAFENIB [Suspect]
     Active Substance: DABRAFENIB
     Indication: METASTATIC MALIGNANT MELANOMA
     Dosage: UNKNOWN DOSE IN ASSOCIATION WITH TRAMETINIB (TRA)
     Route: 065

REACTIONS (1)
  - Pancreatitis acute [Unknown]
